FAERS Safety Report 17791565 (Version 1)
Quarter: 2020Q2

REPORT INFORMATION
  Report Type: Spontaneous
  Country: CZ (occurrence: CZ)
  Receive Date: 20200515
  Receipt Date: 20200515
  Transmission Date: 20200714
  Serious: Yes (Other)
  Sender: FDA-Public Use
  Company Number: CZ-PFIZER INC-2001069108CZ

PATIENT
  Age: 28 Year
  Sex: Female

DRUGS (1)
  1. METHYLPREDNISOLONE SODIUM SUCCINATE. [Suspect]
     Active Substance: METHYLPREDNISOLONE SODIUM SUCCINATE
     Indication: RHEUMATOID ARTHRITIS
     Dosage: 125 MG, DAILY (125 MG IN 250 ML OF 5% GLUCOSE IN WATER ADMINISTERED OVER 3 HR EVERY CONSECUTIVE DAY)
     Route: 042

REACTIONS (1)
  - Bradycardia [Recovered/Resolved]
